FAERS Safety Report 9805582 (Version 1)
Quarter: 2014Q1

REPORT INFORMATION
  Report Type: Spontaneous
  Country: US (occurrence: None)
  Receive Date: 20140107
  Receipt Date: 20140107
  Transmission Date: 20141002
  Serious: Yes (Death)
  Sender: FDA-Public Use
  Company Number: UTC-042290

PATIENT
  Age: 53 Year
  Sex: Female

DRUGS (3)
  1. REMODULIN (2.5 MILLIGRAM/MILLILITERS INJECTION FOR INFUSION) (TREPROSTINIL SODIUM) [Suspect]
     Indication: COR PULMONALE CHRONIC
     Dosage: 76.32 UG/KG (0.053 UG/KG, 1 IN 1 MIN), INTRAVENOUS DRIP
     Route: 041
     Dates: start: 20090115
  2. REVATIO (SILDENAFIL CITRATE) (UNKNOWN) [Concomitant]
  3. UNKNOWN [Concomitant]

REACTIONS (1)
  - Death [None]
